FAERS Safety Report 7784138-7 (Version None)
Quarter: 2011Q3

REPORT INFORMATION
  Report Type: 
  Country: None (occurrence: None)
  Receive Date: 20110928
  Receipt Date: 20110921
  Transmission Date: 20111222
  Serious: Yes (Other)
  Sender: FDA-Public Use
  Company Number: CN-ABBOTT-11P-035-0856967-00

PATIENT
  Age: 48 Year
  Sex: Female

DRUGS (2)
  1. VALPROATE SODIUM [Suspect]
     Indication: MANIA
     Dosage: DAILY
     Route: 048
  2. VALPROATE SODIUM [Suspect]
     Dosage: DAILY
     Route: 048

REACTIONS (3)
  - PETECHIAE [None]
  - IDIOPATHIC THROMBOCYTOPENIC PURPURA [None]
  - CONTUSION [None]
